FAERS Safety Report 4296043-1 (Version None)
Quarter: 2004Q1

REPORT INFORMATION
  Report Type: 
  Country: None (occurrence: None)
  Receive Date: 20040212
  Receipt Date: 20040203
  Transmission Date: 20041129
  Serious: Yes (Hospitalization)
  Sender: FDA-Public Use
  Company Number: 2004UW01888

PATIENT
  Age: 51 Year
  Sex: Female

DRUGS (5)
  1. CRESTOR [Suspect]
     Indication: BLOOD CHOLESTEROL INCREASED
     Dosage: 10 MG PO
     Route: 048
     Dates: end: 20040125
  2. SYNTHROID [Concomitant]
  3. ZOLOFT [Concomitant]
  4. TOPAMAX [Concomitant]
  5. SEROQUEL [Concomitant]

REACTIONS (3)
  - ALOPECIA [None]
  - COLITIS [None]
  - EYE INFECTION [None]
